FAERS Safety Report 5991366-X (Version None)
Quarter: 2008Q4

REPORT INFORMATION
  Report Type: 
  Country: None (occurrence: None)
  Receive Date: 20081211
  Receipt Date: 20081204
  Transmission Date: 20090506
  Serious: Yes (Hospitalization)
  Sender: FDA-Public Use
  Company Number: US-EISAI MEDIAL RESEARCH-M7002-00408-CLI-US

PATIENT
  Sex: Female

DRUGS (6)
  1. ONTAK [Suspect]
     Indication: PERIPHERAL T-CELL LYMPHOMA UNSPECIFIED
     Route: 042
     Dates: start: 20060524, end: 20060929
  2. CYCLOPHOSPHAMIDE [Concomitant]
     Route: 041
     Dates: start: 20060526, end: 20060929
  3. DOXORUBICIN HCL [Concomitant]
     Route: 041
     Dates: start: 20060526, end: 20060929
  4. VINCRISTINE [Concomitant]
     Route: 041
     Dates: start: 20060526, end: 20060929
  5. PREDNISONE TAB [Concomitant]
     Route: 048
     Dates: start: 20080526, end: 20060929
  6. NEULASTA [Concomitant]
     Dates: start: 20080527

REACTIONS (2)
  - LEUKOCYTOSIS [None]
  - PLATELET COUNT DECREASED [None]
